FAERS Safety Report 10305789 (Version 1)
Quarter: 2014Q3

REPORT INFORMATION
  Report Type: Spontaneous
  Country: US (occurrence: None)
  Receive Date: 20140710
  Receipt Date: 20140710
  Transmission Date: 20150326
  Serious: Yes (Hospitalization)
  Sender: FDA-Public Use
  Company Number: UCM201406-000115

PATIENT
  Age: 54 Year
  Sex: Male
  Weight: 148 kg

DRUGS (6)
  1. AMLODIPINE [Suspect]
     Active Substance: AMLODIPINE BESYLATE
  2. HYDROCHLOROTHIAZIDE (HYDROCHLOROTHIAZIDE) (HYDROCHLOROTHIAZIDE) [Suspect]
     Active Substance: HYDROCHLOROTHIAZIDE
  3. METFORMIN [Suspect]
     Active Substance: METFORMIN HYDROCHLORIDE
  4. GLYBURIDE (GLYBURIDE) (GLYBURIDE) [Suspect]
     Active Substance: GLYBURIDE
  5. ASPIRIN (ACETYLSALICYLIC ACID) (ACETYLSALICYLIC ACID) [Suspect]
     Active Substance: ASPIRIN
  6. LISINOPRIL (LISINOPRIL) (LISINOPRIL) [Suspect]
     Active Substance: LISINOPRIL

REACTIONS (6)
  - Glycosylated haemoglobin increased [None]
  - No therapeutic response [None]
  - Myelomalacia [None]
  - Blood pressure increased [None]
  - Intervertebral disc protrusion [None]
  - Fatigue [None]
